FAERS Safety Report 8993571 (Version 1)
Quarter: 2013Q1

REPORT INFORMATION
  Report Type: Spontaneous
  Country: US (occurrence: US)
  Receive Date: 20130102
  Receipt Date: 20130102
  Transmission Date: 20140127
  Serious: Yes (Hospitalization, Other)
  Sender: FDA-Public Use
  Company Number: US-ACTELION-A-US2010-36443

PATIENT
  Age: 63 Year
  Sex: Male

DRUGS (17)
  1. TRACLEER [Suspect]
     Indication: PULMONARY HYPERTENSION
     Dosage: 125 MG, BID
     Route: 048
     Dates: start: 20090701
  2. TRACLEER [Suspect]
     Dosage: 62.5 MG, BID
     Route: 048
     Dates: start: 20090529, end: 20090630
  3. TRACLEER [Suspect]
     Dosage: UNK MG, UNK
     Route: 048
     Dates: start: 20100409, end: 20100412
  4. TRACLEER [Suspect]
     Dosage: 62.5 MG, BID
     Route: 048
     Dates: start: 20100420
  5. TADALAFIL [Concomitant]
  6. NASONEX [Concomitant]
  7. LASIX [Concomitant]
  8. POTASSIUM [Concomitant]
  9. SYNTHROID [Concomitant]
  10. FOSAMAX [Concomitant]
  11. CALCIUM [Concomitant]
  12. LOVENOX [Concomitant]
  13. CLARITIN [Concomitant]
  14. VITAMIN C [Concomitant]
  15. VITAMIN E [Concomitant]
  16. MULTIVITAMIN [Concomitant]
  17. TYVASO [Concomitant]

REACTIONS (13)
  - Ischaemic hepatitis [Recovered/Resolved]
  - Sepsis [Recovered/Resolved]
  - Pneumonia [Unknown]
  - Sinusitis [Recovered/Resolved]
  - Aspartate aminotransferase increased [Recovered/Resolved]
  - Alanine aminotransferase increased [Recovered/Resolved]
  - Blood alkaline phosphatase increased [Recovered/Resolved]
  - Renal failure [Recovered/Resolved]
  - Fatigue [Unknown]
  - Asthenia [Unknown]
  - Liver function test abnormal [Recovered/Resolved]
  - Renal failure acute [None]
  - Off label use [None]
